FAERS Safety Report 5188298-6 (Version None)
Quarter: 2006Q4

REPORT INFORMATION
  Report Type: 
  Country: None (occurrence: None)
  Receive Date: 20061221
  Receipt Date: 20060123
  Transmission Date: 20070319
  Serious: Yes (Other)
  Sender: FDA-Public Use
  Company Number: DE-GLAXOSMITHKLINE-D0048508A

PATIENT
  Sex: Female

DRUGS (1)
  1. VIANI FORTE [Suspect]
     Indication: ASTHMA
     Route: 055

REACTIONS (7)
  - ASTHMA [None]
  - COUGH [None]
  - DRUG DEPENDENCE [None]
  - DYSPHONIA [None]
  - DYSPNOEA [None]
  - RESPIRATORY TRACT INFECTION [None]
  - SPUTUM ABNORMAL [None]
